FAERS Safety Report 19420563 (Version 1)
Quarter: 2021Q2

REPORT INFORMATION
  Report Type: Spontaneous
  Country: CN (occurrence: CN)
  Receive Date: 20210616
  Receipt Date: 20210616
  Transmission Date: 20210717
  Serious: Yes (Hospitalization)
  Sender: FDA-Public Use
  Company Number: CN-ABBVIE-21K-035-3944604-00

PATIENT
  Age: 12 Month
  Sex: Female
  Weight: 10 kg

DRUGS (1)
  1. VALPROATE SODIUM. [Suspect]
     Active Substance: VALPROATE SODIUM
     Indication: EPILEPSY
     Dosage: 20 ML, BID
     Route: 048
     Dates: start: 20210501, end: 20210504

REACTIONS (2)
  - Dysphoria [Recovered/Resolved]
  - Nausea [Recovered/Resolved]

NARRATIVE: CASE EVENT DATE: 20210504
